FAERS Safety Report 10540918 (Version 3)
Quarter: 2015Q1

REPORT INFORMATION
  Report Type: Spontaneous
  Country: GR (occurrence: GR)
  Receive Date: 20141024
  Receipt Date: 20150108
  Transmission Date: 20150720
  Serious: Yes (Other)
  Sender: FDA-Public Use
  Company Number: PHHY2014GR135006

PATIENT
  Age: 27 Year
  Sex: Female

DRUGS (1)
  1. GILENYA [Suspect]
     Active Substance: FINGOLIMOD HYDROCHLORIDE
     Indication: MULTIPLE SCLEROSIS
     Route: 065
     Dates: end: 20141014

REACTIONS (5)
  - Macular degeneration [Recovering/Resolving]
  - Optic neuritis [Recovering/Resolving]
  - Macular cyst [Recovering/Resolving]
  - Macular oedema [Recovering/Resolving]
  - Visual acuity reduced [Unknown]

NARRATIVE: CASE EVENT DATE: 20141014
